FAERS Safety Report 26037094 (Version 1)
Quarter: 2025Q4

REPORT INFORMATION
  Report Type: Spontaneous
  Country: US (occurrence: US)
  Receive Date: 20251112
  Receipt Date: 20251112
  Transmission Date: 20260118
  Serious: No
  Sender: PARATEK PHARMACEUTICALS
  Company Number: US-PARATEK PHARMACEUTICALS, INC.-2025PTK00150

PATIENT
  Age: 51 Year
  Sex: Female

DRUGS (4)
  1. OMADACYCLINE [Suspect]
     Active Substance: OMADACYCLINE
     Indication: Abdominal wall abscess
     Dosage: UNK
  2. OMADACYCLINE [Suspect]
     Active Substance: OMADACYCLINE
     Indication: Mycobacterium abscessus infection
  3. CEFOXITIN [Suspect]
     Active Substance: CEFOXITIN SODIUM
     Indication: Abdominal wall abscess
     Dosage: UNK
  4. CEFOXITIN [Suspect]
     Active Substance: CEFOXITIN SODIUM
     Indication: Mycobacterium abscessus infection

REACTIONS (2)
  - Skin induration [Not Recovered/Not Resolved]
  - Off label use [Not Recovered/Not Resolved]
